FAERS Safety Report 8924551 (Version 1)
Quarter: 2012Q4

REPORT INFORMATION
  Report Type: Spontaneous
  Country: US (occurrence: None)
  Receive Date: 20121116
  Receipt Date: 20121116
  Transmission Date: 20130627
  Serious: Yes (Other)
  Sender: FDA-Public Use
  Company Number: JPI-P-026017

PATIENT
  Age: 31 Year
  Sex: Female

DRUGS (7)
  1. XYREM (500 MILLIGRAM/MILLILITERS, SOLUTION) (SODIUM OXYBATE) [Suspect]
     Indication: NARCOLEPSY
     Dates: start: 20120906
  2. XYREM (500 MILLIGRAM/MILLILITERS, SOLUTION) (SODIUM OXYBATE) [Suspect]
     Indication: NARCOLEPSY
     Route: 048
  3. XYREM (500 MILLIGRAM/MILLILITERS, SOLUTION) (SODIUM OXYBATE) [Suspect]
     Indication: NARCOLEPSY
     Dates: end: 20121020
  4. XYREM (500 MILLIGRAM/MILLILITERS, SOLUTION) (SODIUM OXYBATE) [Suspect]
     Indication: NARCOLEPSY
     Route: 048
  5. DEXMETHYLPHENIDATE HYDROCHLORIDE [Suspect]
     Indication: DRUG USE FOR UNKNOWN INDICATION
  6. SERTRALINE [Suspect]
     Indication: DRUG USE FOR UNKNOWN INDICATION
  7. UNSPECIFIED MIGRAINE MEDICATION [Concomitant]

REACTIONS (13)
  - Headache [None]
  - Back pain [None]
  - Nausea [None]
  - Hot flush [None]
  - Tremor [None]
  - Anxiety [None]
  - Fear [None]
  - Self injurious behaviour [None]
  - Anger [None]
  - Paraesthesia [None]
  - Dyspnoea [None]
  - Dizziness [None]
  - Gait disturbance [None]
